FAERS Safety Report 15497061 (Version 4)
Quarter: 2019Q2

REPORT INFORMATION
  Report Type: Report from Study
  Country: JP (occurrence: JP)
  Receive Date: 20181015
  Receipt Date: 20190617
  Transmission Date: 20190711
  Serious: Yes (Hospitalization, Other)
  Sender: FDA-Public Use
  Company Number: JP-ROCHE-2198227

PATIENT
  Age: 54 Year
  Sex: Male
  Weight: 63 kg

DRUGS (1)
  1. ATEZOLIZUMAB. [Suspect]
     Active Substance: ATEZOLIZUMAB
     Indication: NON-SMALL CELL LUNG CANCER
     Route: 041
     Dates: start: 20180907, end: 20180907

REACTIONS (6)
  - Peripheral motor neuropathy [Recovering/Resolving]
  - Nervous system disorder [Not Recovered/Not Resolved]
  - Myositis [Not Recovered/Not Resolved]
  - Hyponatraemia [Recovered/Resolved]
  - Peripheral sensory neuropathy [Recovering/Resolving]
  - Pyrexia [Recovered/Resolved]

NARRATIVE: CASE EVENT DATE: 20180917
